FAERS Safety Report 9244119 (Version 1)
Quarter: 2013Q1

REPORT INFORMATION
  Report Type: Spontaneous
  Country: US (occurrence: None)
  Receive Date: 20121123
  Receipt Date: 20121123
  Transmission Date: 20140127
  Serious: No
  Sender: FDA-Public Use
  Company Number: 363186

PATIENT
  Sex: Male

DRUGS (1)
  1. VICTOZA [Suspect]
     Indication: PRODUCT USED FOR UNKNOWN INDICATION
     Route: 058

REACTIONS (7)
  - Upper extremity mass [None]
  - Urine odour abnormal [None]
  - Skin odour abnormal [None]
  - Blood glucose increased [None]
  - Diarrhoea [None]
  - Pruritus [None]
  - Constipation [None]
